FAERS Safety Report 17777763 (Version 4)
Quarter: 2021Q1

REPORT INFORMATION
  Report Type: Report from Study
  Country: US (occurrence: US)
  Receive Date: 20200513
  Receipt Date: 20210322
  Transmission Date: 20210419
  Serious: No
  Sender: FDA-Public Use
  Company Number: US-ACADIA PHARMACEUTICALS INC.-ACA-2019-014554

PATIENT
  Sex: Male

DRUGS (3)
  1. NUPLAZID [Suspect]
     Active Substance: PIMAVANSERIN TARTRATE
     Indication: PARKINSON^S DISEASE PSYCHOSIS
     Dosage: 34 MG, QD
     Route: 048
     Dates: start: 20191025, end: 201910
  2. NUPLAZID [Suspect]
     Active Substance: PIMAVANSERIN TARTRATE
     Indication: HALLUCINATION
     Dosage: 34 MG, QD
     Route: 048
     Dates: start: 201910
  3. NUPLAZID [Suspect]
     Active Substance: PIMAVANSERIN TARTRATE
     Indication: DELUSION
     Dosage: 34 MG, QD
     Route: 048
     Dates: start: 20191105

REACTIONS (12)
  - Fatigue [Unknown]
  - Insomnia [Unknown]
  - Hallucination [Unknown]
  - Condition aggravated [Unknown]
  - Adverse drug reaction [Unknown]
  - Abnormal behaviour [Unknown]
  - Hypokinesia [Unknown]
  - Cognitive disorder [Unknown]
  - Drug intolerance [Unknown]
  - Hypersomnia [Recovering/Resolving]
  - Confusional state [Unknown]
  - Hallucination [Unknown]

NARRATIVE: CASE EVENT DATE: 2019
